FAERS Safety Report 5399927-6 (Version None)
Quarter: 2007Q3

REPORT INFORMATION
  Report Type: 
  Country: None (occurrence: None)
  Receive Date: 20070730
  Receipt Date: 20070725
  Transmission Date: 20080115
  Serious: Yes (Other)
  Sender: FDA-Public Use
  Company Number: US-BAYER-200711852BCC

PATIENT
  Age: 68 Year
  Sex: Female
  Weight: 67 kg

DRUGS (14)
  1. RID LICE AND EGG KILLING SHAMPOO AND CONDITIONER [Suspect]
     Indication: LICE INFESTATION
     Route: 061
     Dates: start: 20070605
  2. RID COMB OUT GEL [Suspect]
     Indication: LICE INFESTATION
     Route: 061
     Dates: start: 20070605
  3. RID COMB [Suspect]
     Indication: LICE INFESTATION
  4. METFORMIN HCL [Concomitant]
  5. FENUGREEK SEED [Concomitant]
  6. VEGATARIAN GLUCOSAMINE [Concomitant]
  7. SELENIUM SULFIDE [Concomitant]
  8. ALPHA LIPOIC ACID [Concomitant]
  9. PYCNOGENOL [Concomitant]
  10. ELDERBERRY [Concomitant]
  11. ECHINACEA [Concomitant]
  12. GOLD SEAL ANTISEPTIC POWDER [Concomitant]
  13. VITAMIN D [Concomitant]
  14. DHEA [Concomitant]

REACTIONS (1)
  - SKIN HAEMORRHAGE [None]
